FAERS Safety Report 21731747 (Version 11)
Quarter: 2023Q4

REPORT INFORMATION
  Report Type: Report from Study
  Country: US (occurrence: None)
  Receive Date: 20221215
  Receipt Date: 20231201
  Transmission Date: 20240110
  Serious: Yes (Hospitalization, Other)
  Sender: FDA-Public Use
  Company Number: US-ROCHE-3208842

PATIENT
  Age: 82 Year
  Sex: Female
  Weight: 62 kg

DRUGS (32)
  1. RANIBIZUMAB [Suspect]
     Active Substance: RANIBIZUMAB
     Indication: Diabetic retinal oedema
     Dosage: DOSE OF STUDY DRUG FIRST ADMINISTERED 10 MG/ML, START DATE OF MOST RECENT DOSE OF STUDY DRUG PRIOR T
     Route: 050
     Dates: start: 20200319
  2. RANIBIZUMAB [Suspect]
     Active Substance: RANIBIZUMAB
  3. RANIBIZUMAB [Suspect]
     Active Substance: RANIBIZUMAB
  4. RANIBIZUMAB [Suspect]
     Active Substance: RANIBIZUMAB
  5. RANIBIZUMAB [Suspect]
     Active Substance: RANIBIZUMAB
  6. RANIBIZUMAB [Concomitant]
     Active Substance: RANIBIZUMAB
     Dosage: DOSE OF STUDY DRUG FIRST ADMINISTERED 6 MG/ML, START DATE OF MOST RECENT DOSE OF STUDY DRUG PRIOR TO
     Route: 050
     Dates: start: 20210615
  7. GLIPIZIDE ER [Concomitant]
     Active Substance: GLIPIZIDE
     Indication: Type 2 diabetes mellitus
     Dosage: 5 MG/ML
     Route: 048
     Dates: start: 2012
  8. LISINOPRIL AND HYDROCHLOROTHIAZIDE [Concomitant]
     Active Substance: HYDROCHLOROTHIAZIDE\LISINOPRIL
     Indication: Hypertension
     Dosage: 20 MG/ML
     Route: 048
     Dates: start: 1990
  9. PANTOPRAZOLE SODIUM [Concomitant]
     Active Substance: PANTOPRAZOLE SODIUM
     Indication: Gastric ulcer
     Dosage: 40MG/ML
     Route: 048
     Dates: start: 201912
  10. LORATADINE [Concomitant]
     Active Substance: LORATADINE
     Dosage: 10 MG/ML
     Route: 048
     Dates: start: 20200319
  11. VITAMIN B12 [Concomitant]
     Active Substance: CYANOCOBALAMIN
     Dosage: 1000 MG/ML
     Route: 058
     Dates: start: 20200313
  12. CLOPIDOGREL [Concomitant]
     Active Substance: CLOPIDOGREL BISULFATE
     Dosage: 75 MG/ML
     Route: 048
     Dates: start: 20200714
  13. ORPHENADRINE [Concomitant]
     Active Substance: ORPHENADRINE
     Dosage: 100 MG/ML
     Route: 048
     Dates: start: 20200815
  14. AMLODIPINE [Concomitant]
     Active Substance: AMLODIPINE BESYLATE
     Indication: Hypertension
     Route: 048
     Dates: start: 20201009
  15. LEVEMIR [Concomitant]
     Active Substance: INSULIN DETEMIR
     Indication: Diabetes mellitus
     Dosage: 12 U
     Route: 058
     Dates: start: 20201023
  16. DULOXETINE [Concomitant]
     Active Substance: DULOXETINE
     Route: 048
     Dates: start: 20201025
  17. B12 VITAMIN ANKERMANN [Concomitant]
     Dosage: 100 MG/ML
     Route: 048
     Dates: start: 20210405
  18. ESOMEPRAZOLE MAGNESIUM [Concomitant]
     Active Substance: ESOMEPRAZOLE\ESOMEPRAZOLE MAGNESIUM\ESOMEPRAZOLE MAGNESIUM DIHYDRATE
     Route: 048
     Dates: start: 20210409
  19. CETIRIZINE [Concomitant]
     Active Substance: CETIRIZINE HYDROCHLORIDE
     Route: 048
     Dates: start: 202009
  20. ACETAMINOPHEN [Concomitant]
     Active Substance: ACETAMINOPHEN
     Dosage: 500 MG/ML
     Route: 048
     Dates: start: 20220510
  21. IRON [Concomitant]
     Active Substance: IRON
     Dosage: 27 MG/ML
     Route: 048
  22. ALPRAZOLAM [Concomitant]
     Active Substance: ALPRAZOLAM
     Indication: Claustrophobia
     Dosage: 0.5 OTHER
     Route: 048
  23. CEPHALEXIN [Concomitant]
     Active Substance: CEPHALEXIN
     Indication: Cellulitis
     Dosage: MEDICATION DOSE 500 MG/ML
     Route: 048
     Dates: start: 20230130, end: 20230209
  24. VITAMIN D2 [Concomitant]
     Active Substance: ERGOCALCIFEROL
  25. NINJACOF [Concomitant]
     Active Substance: CHLOPHEDIANOL\PYRILAMINE MALEATE
     Indication: Sinusitis
     Route: 048
     Dates: start: 20221111, end: 20221118
  26. AZITHROMYCIN [Concomitant]
     Active Substance: AZITHROMYCIN
     Indication: Sinusitis
     Dosage: 250 MG/ML
     Route: 048
     Dates: start: 20221111, end: 20221118
  27. ALBUTEROL [Concomitant]
     Active Substance: ALBUTEROL
     Indication: Sinusitis
     Route: 055
     Dates: start: 20221111, end: 20221118
  28. LASIX [Concomitant]
     Active Substance: FUROSEMIDE
     Indication: Oedema
     Dosage: 40 MG/ML
     Route: 048
     Dates: start: 202309
  29. BRILINTA [Concomitant]
     Active Substance: TICAGRELOR
     Dosage: 90 MG/ML
     Route: 048
     Dates: start: 202309
  30. LIPITOR [Concomitant]
     Active Substance: ATORVASTATIN CALCIUM
     Indication: Hypertension
     Dosage: 10 MG/ML
     Route: 048
     Dates: start: 202309
  31. COREG [Concomitant]
     Active Substance: CARVEDILOL
     Indication: Hypertension
     Dosage: 12.5 MG/ML
     Route: 048
     Dates: start: 202309
  32. POLYTRIM [Concomitant]
     Active Substance: POLYMYXIN B SULFATE\TRIMETHOPRIM SULFATE
     Indication: Eye infection
     Route: 047
     Dates: start: 202309

REACTIONS (2)
  - Device issue [Unknown]
  - Hypotension [Recovered/Resolved]

NARRATIVE: CASE EVENT DATE: 20221027
